FAERS Safety Report 6195753-9 (Version None)
Quarter: 2009Q2

REPORT INFORMATION
  Report Type: 
  Country: None (occurrence: None)
  Receive Date: 20090520
  Receipt Date: 20070514
  Transmission Date: 20091009
  Serious: Yes (Hospitalization, Other)
  Sender: FDA-Public Use
  Company Number: US-ASTRAZENECA-2006UW10959

PATIENT
  Age: 42 Year
  Sex: Male
  Weight: 108.9 kg

DRUGS (44)
  1. SEROQUEL [Suspect]
     Indication: DEPRESSION
     Route: 048
     Dates: end: 20051101
  2. SEROQUEL [Suspect]
     Indication: ANXIETY
     Route: 048
     Dates: end: 20051101
  3. SEROQUEL [Suspect]
     Indication: POST-TRAUMATIC STRESS DISORDER
     Route: 048
     Dates: end: 20051101
  4. SEROQUEL [Suspect]
     Indication: SLEEP DISORDER
     Route: 048
     Dates: end: 20051101
  5. SEROQUEL [Suspect]
     Dosage: 25 TO 50 MG
     Route: 048
     Dates: start: 20030413
  6. SEROQUEL [Suspect]
     Dosage: 25 TO 50 MG
     Route: 048
     Dates: start: 20030413
  7. SEROQUEL [Suspect]
     Dosage: 25 TO 50 MG
     Route: 048
     Dates: start: 20030413
  8. SEROQUEL [Suspect]
     Dosage: 25 TO 50 MG
     Route: 048
     Dates: start: 20030413
  9. ZYPREXA [Suspect]
     Dates: start: 19980101, end: 20050101
  10. WELLBUTRIN [Concomitant]
  11. NEURONTIN [Concomitant]
  12. REMERON [Concomitant]
  13. PAXIL [Concomitant]
  14. METHADONE [Concomitant]
     Dates: start: 20040701, end: 20050201
  15. ASPIRIN [Concomitant]
  16. ATENOLOL [Concomitant]
     Route: 048
  17. AVALIDE [Concomitant]
     Dosage: 150 MG,12.5 MG
     Route: 048
  18. BACLOFEN [Concomitant]
     Route: 048
  19. BACTRIM [Concomitant]
     Dosage: 400 TO 1000 MG
  20. CHLORHEXIDINE GLUCONATE [Concomitant]
     Route: 061
  21. DIABETA [Concomitant]
     Dosage: 5 TO 10 MG
  22. HYDROCHLOROTHIAZIDE [Concomitant]
     Route: 048
  23. IMDUR [Concomitant]
     Dosage: 30 TO 90 MG
     Route: 048
  24. INSULIN [Concomitant]
     Dosage: 6 TO 44 UNITS
  25. KADIAN [Concomitant]
     Dosage: 15 TO 60 MG
  26. LUNESTA [Concomitant]
     Route: 048
  27. METOPROLOL [Concomitant]
     Route: 048
  28. METFORMIN HCL [Concomitant]
     Dosage: 500 TO 1000 MG
     Route: 048
  29. NAPROSYN [Concomitant]
  30. NICOTINE [Concomitant]
     Dosage: 7 TO 21 MG
  31. NITROGLYCERIN [Concomitant]
     Route: 060
  32. OXYCODONE HCL [Concomitant]
  33. PERCOCET [Concomitant]
     Route: 048
  34. PLAVIX [Concomitant]
     Route: 048
  35. PROMETHAZINE [Concomitant]
  36. PIROXICAM [Concomitant]
     Route: 048
  37. CELEXA [Concomitant]
     Route: 048
  38. SIMVASTATIN [Concomitant]
     Dosage: 20 TO 40 MG
     Route: 048
  39. TOPIRAMATE [Concomitant]
     Route: 048
  40. VICOPROFEN [Concomitant]
  41. VIOXX [Concomitant]
     Dosage: 12.5 TO 50 MG
     Route: 048
  42. ZESTRIL [Concomitant]
  43. ZOLOFT [Concomitant]
  44. MORPHINE [Concomitant]
     Dosage: 2 TO 6 MG
     Route: 048

REACTIONS (56)
  - ABDOMINAL PAIN [None]
  - AFFECTIVE DISORDER [None]
  - ANGINA PECTORIS [None]
  - APPENDIX DISORDER [None]
  - BONE DISORDER [None]
  - CARDIAC DISORDER [None]
  - CELLULITIS [None]
  - CHEST PAIN [None]
  - CORONARY ARTERY DISEASE [None]
  - COUGH [None]
  - DEEP VEIN THROMBOSIS [None]
  - DEPRESSION [None]
  - DIABETES MELLITUS [None]
  - DIABETIC RETINOPATHY [None]
  - DYSPNOEA [None]
  - DYSTHYMIC DISORDER [None]
  - DYSURIA [None]
  - EXOSTOSIS [None]
  - FLANK PAIN [None]
  - FOOT DEFORMITY [None]
  - HAEMATEMESIS [None]
  - HYPERKERATOSIS [None]
  - ISCHAEMIC CARDIOMYOPATHY [None]
  - JOINT CONTRACTURE [None]
  - MOOD DISORDER DUE TO A GENERAL MEDICAL CONDITION [None]
  - MYALGIA [None]
  - MYOCARDIAL INFARCTION [None]
  - NASOPHARYNGITIS [None]
  - NAUSEA [None]
  - NEUROPATHY PERIPHERAL [None]
  - ONYCHOMYCOSIS [None]
  - OSTEOARTHRITIS [None]
  - OSTEOCHONDROSIS [None]
  - PAIN [None]
  - PAIN IN EXTREMITY [None]
  - POLYDIPSIA [None]
  - POLYURIA [None]
  - POST-TRAUMATIC STRESS DISORDER [None]
  - PSEUDOMONAS INFECTION [None]
  - PYREXIA [None]
  - RADICULITIS BRACHIAL [None]
  - RASH [None]
  - RECTAL HAEMORRHAGE [None]
  - SKIN LACERATION [None]
  - SUPRAPUBIC PAIN [None]
  - SWELLING [None]
  - SYNCOPE [None]
  - THALASSAEMIA [None]
  - TOOTH DISORDER [None]
  - ULCER [None]
  - UPPER RESPIRATORY TRACT INFECTION [None]
  - URINARY TRACT INFECTION [None]
  - VOMITING [None]
  - WHEEZING [None]
  - WOUND DEHISCENCE [None]
  - WOUND INFECTION [None]
